FAERS Safety Report 24959220 (Version 1)
Quarter: 2025Q1

REPORT INFORMATION
  Report Type: Spontaneous
  Country: DE (occurrence: DE)
  Receive Date: 20250212
  Receipt Date: 20250212
  Transmission Date: 20250409
  Serious: Yes (Other)
  Sender: GILEAD
  Company Number: DE-GILEAD-2025-0702152

PATIENT
  Age: 63 Year
  Sex: Female

DRUGS (1)
  1. TRODELVY [Suspect]
     Active Substance: SACITUZUMAB GOVITECAN-HZIY
     Indication: Product used for unknown indication
     Route: 065
     Dates: start: 20250109, end: 20250117

REACTIONS (5)
  - Proctitis [Not Recovered/Not Resolved]
  - Pharyngeal inflammation [Not Recovered/Not Resolved]
  - Sinus congestion [Not Recovered/Not Resolved]
  - Eye infection [Not Recovered/Not Resolved]
  - Stomatitis [Not Recovered/Not Resolved]

NARRATIVE: CASE EVENT DATE: 20250119
